FAERS Safety Report 6494710-2 (Version None)
Quarter: 2009Q4

REPORT INFORMATION
  Report Type: 
  Country: None (occurrence: None)
  Receive Date: 20091214
  Receipt Date: 20090318
  Transmission Date: 20100525
  Serious: No
  Sender: FDA-Public Use
  Company Number: US-BRISTOL-MYERS SQUIBB COMPANY-14549000

PATIENT
  Age: 60 Year
  Sex: Male
  Weight: 102 kg

DRUGS (11)
  1. ABILIFY [Suspect]
     Indication: DEPRESSION
     Dates: start: 20080101
  2. CYMBALTA [Concomitant]
  3. GEODON [Concomitant]
  4. HYDROCHLOROTHIAZIDE [Concomitant]
  5. EXFORGE [Concomitant]
  6. CLONIDINE [Concomitant]
  7. METOPROLOL [Concomitant]
  8. MULTI-VITAMIN [Concomitant]
  9. ASCORBIC ACID [Concomitant]
  10. LOVAZA [Concomitant]
  11. VITAMIN B COMPLEX CAP [Concomitant]

REACTIONS (1)
  - BLOOD GLUCOSE INCREASED [None]
